FAERS Safety Report 8265941-6 (Version None)
Quarter: 2012Q2

REPORT INFORMATION
  Report Type: 
  Country: None (occurrence: None)
  Receive Date: 20120406
  Receipt Date: 20120330
  Transmission Date: 20120825
  Serious: Yes (Other)
  Sender: FDA-Public Use
  Company Number: US-MERCK-1112USA01243

PATIENT
  Age: 60 Year
  Sex: Female
  Weight: 65 kg

DRUGS (5)
  1. FOSAMAX [Suspect]
     Route: 048
  2. ALENDRONATE SODIUM [Suspect]
     Route: 065
     Dates: start: 20080612
  3. FOSAMAX [Suspect]
     Indication: OSTEOPENIA
     Route: 048
     Dates: start: 20010621, end: 20100301
  4. FOSAMAX [Suspect]
     Indication: OSTEOPOROSIS
     Route: 048
     Dates: start: 20010621, end: 20100301
  5. FOSAMAX [Suspect]
     Route: 048

REACTIONS (10)
  - ACTIVITIES OF DAILY LIVING IMPAIRED [None]
  - TOOTH DISORDER [None]
  - ALLERGY TO ARTHROPOD BITE [None]
  - DEPRESSED MOOD [None]
  - OVERDOSE [None]
  - FEMUR FRACTURE [None]
  - BLOOD CHOLESTEROL INCREASED [None]
  - FEAR [None]
  - ANXIETY [None]
  - INSOMNIA [None]
